FAERS Safety Report 16478957 (Version 2)
Quarter: 2019Q3

REPORT INFORMATION
  Report Type: Spontaneous
  Country: US (occurrence: US)
  Receive Date: 20190626
  Receipt Date: 20190704
  Transmission Date: 20191004
  Serious: Yes (Other)
  Sender: FDA-Public Use
  Company Number: US-PFIZER INC-2019267385

PATIENT
  Age: 11 Year
  Sex: Female

DRUGS (6)
  1. GENTAMICIN. [Concomitant]
     Active Substance: GENTAMICIN
     Indication: ANTIBIOTIC THERAPY
     Dosage: 120 MG, GIVEN ONCE
  2. FLAGYL [Concomitant]
     Active Substance: METRONIDAZOLE\METRONIDAZOLE HYDROCHLORIDE
     Indication: ANTIBIOTIC THERAPY
     Dosage: 500 MG, GIVEN ONCE
  3. FLAGYL [Concomitant]
     Active Substance: METRONIDAZOLE\METRONIDAZOLE HYDROCHLORIDE
     Indication: PELVIC OPERATION
  4. AMPICILLIN SODIUM. [Suspect]
     Active Substance: AMPICILLIN SODIUM
     Indication: ANTIBIOTIC THERAPY
     Dosage: 35 MG/KG OR 2000MG/DOSE EVERY 2 HOURS, 6G WITHIN SIX HOURS, OR 35 MG/KG FOR THREE DOSES)
  5. GENTAMICIN. [Concomitant]
     Active Substance: GENTAMICIN
     Indication: PELVIC OPERATION
  6. AMPICILLIN SODIUM. [Suspect]
     Active Substance: AMPICILLIN SODIUM
     Indication: PELVIC OPERATION

REACTIONS (2)
  - Ureteric obstruction [Recovered/Resolved]
  - Ureterolithiasis [Recovered/Resolved]
